FAERS Safety Report 25284685 (Version 1)
Quarter: 2025Q2

REPORT INFORMATION
  Report Type: Spontaneous
  Country: US (occurrence: US)
  Receive Date: 20250508
  Receipt Date: 20250508
  Transmission Date: 20250717
  Serious: Yes (Hospitalization)
  Sender: PHARMING GROUP
  Company Number: US-PHARMING-PHAUS2025000638

PATIENT

DRUGS (3)
  1. RUCONEST [Suspect]
     Active Substance: CONESTAT ALFA
     Indication: Hereditary angioedema
     Route: 042
     Dates: start: 202003
  2. KEFLEX                             /00145501/ [Concomitant]
     Indication: Product used for unknown indication
  3. DOXYCYCLINE [Concomitant]
     Active Substance: DOXYCYCLINE
     Indication: Product used for unknown indication

REACTIONS (4)
  - Device related infection [Unknown]
  - Cellulitis [Unknown]
  - Catheter site injury [Unknown]
  - Sensitivity to weather change [Unknown]
